FAERS Safety Report 9649772 (Version 1)
Quarter: 2013Q4

REPORT INFORMATION
  Report Type: Spontaneous
  Country: US (occurrence: US)
  Receive Date: 20131028
  Receipt Date: 20131028
  Transmission Date: 20140711
  Serious: No
  Sender: FDA-Public Use
  Company Number: US-PURDUE-USA-2012-0096274

PATIENT
  Sex: Female

DRUGS (2)
  1. OXYCODONE HCL IR CAPSULES [Suspect]
     Indication: PRODUCT USED FOR UNKNOWN INDICATION
     Dosage: 30 MG, 2-3 TIMES DAILY
     Route: 048
  2. PERCOCET                           /00867901/ [Concomitant]
     Indication: PRODUCT USED FOR UNKNOWN INDICATION
     Dosage: 5 MG, 2-3 TIMES DAILY
     Route: 048

REACTIONS (1)
  - Vomiting [Unknown]
